FAERS Safety Report 17554290 (Version 1)
Quarter: 2020Q1

REPORT INFORMATION
  Report Type: Spontaneous
  Country: US (occurrence: US)
  Receive Date: 20200318
  Receipt Date: 20200318
  Transmission Date: 20200409
  Serious: Yes (Other)
  Sender: FDA-Public Use
  Company Number: US-GLAXOSMITHKLINE-US2020044441

PATIENT
  Age: 79 Year
  Sex: Female

DRUGS (2)
  1. ADVAIR DISKUS [Suspect]
     Active Substance: FLUTICASONE PROPIONATE\SALMETEROL XINAFOATE
     Indication: PRODUCT USED FOR UNKNOWN INDICATION
     Dosage: 1 PUFF(S), BID
     Route: 055
  2. ADVAIR DISKUS [Suspect]
     Active Substance: FLUTICASONE PROPIONATE\SALMETEROL XINAFOATE
     Dosage: 1 PUFF(S), QD
     Route: 055

REACTIONS (12)
  - Breast cancer [Recovering/Resolving]
  - Knee arthroplasty [Recovered/Resolved]
  - Expired product administered [Unknown]
  - Product dose omission [Unknown]
  - Stomatitis [Recovered/Resolved]
  - Bone disorder [Unknown]
  - Wrong technique in device usage process [Unknown]
  - Ill-defined disorder [Unknown]
  - Hip arthroplasty [Recovered/Resolved]
  - Influenza [Not Recovered/Not Resolved]
  - Intentional underdose [Unknown]
  - Intentional product misuse [Unknown]

NARRATIVE: CASE EVENT DATE: 2019
